FAERS Safety Report 26108329 (Version 1)
Quarter: 2025Q4

REPORT INFORMATION
  Report Type: Spontaneous
  Country: US (occurrence: US)
  Receive Date: 20251201
  Receipt Date: 20251201
  Transmission Date: 20260119
  Serious: Yes (Hospitalization)
  Sender: BRISTOL-MYERS SQUIBB COMPANY
  Company Number: US-BRISTOL-MYERS SQUIBB COMPANY-2025-161649

PATIENT
  Age: 64 Year
  Sex: Male

DRUGS (1)
  1. IDHIFA [Suspect]
     Active Substance: ENASIDENIB MESYLATE
     Indication: Chronic myelomonocytic leukaemia
     Dosage: DAILY
     Route: 048
     Dates: start: 201907

REACTIONS (2)
  - Cerebral disorder [Unknown]
  - Off label use [Unknown]
